FAERS Safety Report 16758130 (Version 1)
Quarter: 2019Q3

REPORT INFORMATION
  Report Type: Spontaneous
  Country: US (occurrence: US)
  Receive Date: 20190830
  Receipt Date: 20190830
  Transmission Date: 20191005
  Serious: No
  Sender: FDA-Public Use
  Company Number: US-009507513-1908USA006267

PATIENT
  Age: 27 Year
  Sex: Female
  Weight: 76.19 kg

DRUGS (3)
  1. NEXPLANON [Suspect]
     Active Substance: ETONOGESTREL
     Indication: CONTRACEPTION
     Dosage: 1 IMPLANT IN UPPER LEFT ARM
     Route: 058
     Dates: start: 20190717
  2. VALACYCLOVIR HYDROCHLORIDE. [Concomitant]
     Active Substance: VALACYCLOVIR HYDROCHLORIDE
     Dosage: 500 MG TWICE A DAY WHEN SHE HAS AN OUT BREAK
  3. AIMOVIG [Concomitant]
     Active Substance: ERENUMAB-AOOE
     Dosage: 70 MILLIGRAM (AUTO INJECTOR)

REACTIONS (1)
  - Implant site pain [Not Recovered/Not Resolved]

NARRATIVE: CASE EVENT DATE: 20190717
